FAERS Safety Report 18159728 (Version 15)
Quarter: 2021Q3

REPORT INFORMATION
  Report Type: Report from Study
  Country: None (occurrence: NL)
  Receive Date: 20200818
  Receipt Date: 20210904
  Transmission Date: 20211014
  Serious: Yes (Hospitalization)
  Sender: FDA-Public Use
  Company Number: NL-ABBVIE-20K-114-3446953-00

PATIENT
  Age: 54 Year
  Sex: Female
  Weight: 47.5 kg

DRUGS (17)
  1. DUODOPA [Suspect]
     Active Substance: CARBIDOPA\LEVODOPA
     Dosage: MD: 5.8 ML, CD: 4.5 ML/H, ED: 0.8 ML
     Route: 050
  2. DUODOPA [Suspect]
     Active Substance: CARBIDOPA\LEVODOPA
     Dosage: MD: 6.4 ML, CD: 4.7 ML/H, ED: 0.0ML
     Route: 050
  3. DUODOPA [Suspect]
     Active Substance: CARBIDOPA\LEVODOPA
     Dosage: MD: 6.2 ML, CD: 4.6 ML/H, ED: 1.0 ML; 16 HOUR ADMINISTRATION
     Route: 050
     Dates: start: 20160324
  4. DUODOPA [Suspect]
     Active Substance: CARBIDOPA\LEVODOPA
     Dosage: MD: 6.4 ML, CD: 4.7 ML/H
     Route: 050
  5. DUODOPA [Suspect]
     Active Substance: CARBIDOPA\LEVODOPA
     Dosage: MD: 6.4 ML, CD: 4.9 ML/H, ED: 0.0 ML
     Route: 050
  6. DUODOPA [Suspect]
     Active Substance: CARBIDOPA\LEVODOPA
     Dosage: MD: 5.8 ML, CD: 4.5 ML/H, ED: 0.0 ML
     Route: 050
  7. DUODOPA [Suspect]
     Active Substance: CARBIDOPA\LEVODOPA
     Dosage: MD: 5.8 ML, CD: 4.1 ML/H, ED: 0.0 ML
     Route: 050
  8. DUODOPA [Suspect]
     Active Substance: CARBIDOPA\LEVODOPA
     Dosage: MD: 4.1ML; CD: 4.6ML/H; ED: 1.0ML: CND: 2.3ML/H
     Route: 050
  9. MADOPAR HBS [Concomitant]
     Active Substance: BENSERAZIDE HYDROCHLORIDE\LEVODOPA
     Indication: PARKINSON^S DISEASE
     Route: 048
  10. DUODOPA [Suspect]
     Active Substance: CARBIDOPA\LEVODOPA
     Dosage: MD: 6.1 ML, CD: 4.6 ML/H, ED: 1.0 ML
     Route: 050
  11. DUODOPA [Suspect]
     Active Substance: CARBIDOPA\LEVODOPA
     Dosage: MD: 6.1ML; CD:4.5ML/H ED:0.0ML
     Route: 050
  12. DUODOPA [Suspect]
     Active Substance: CARBIDOPA\LEVODOPA
     Indication: PARKINSON^S DISEASE
     Dosage: MD: 6.2 ML, CD: 4.6 ML/H, ED: 1.0 ML; 16 HOUR ADMINISTRATION
     Route: 050
  13. DUODOPA [Suspect]
     Active Substance: CARBIDOPA\LEVODOPA
     Dosage: MD: 6.1 ML, CD: 4.9 ML/H, ED: 1.0 ML
     Route: 050
  14. DUODOPA [Suspect]
     Active Substance: CARBIDOPA\LEVODOPA
     Dosage: MD: 7.1 ML, CD: 5.5 ML/H, ED: 1.0 ML; 16 HOUR ADMINISTRATION
     Route: 050
  15. DUODOPA [Suspect]
     Active Substance: CARBIDOPA\LEVODOPA
     Dosage: MD: 6.1ML; CD:4.6ML/H ED:0.0ML
     Route: 050
  16. DUODOPA [Suspect]
     Active Substance: CARBIDOPA\LEVODOPA
     Dosage: CD: 4.8 ML/H
     Route: 050
  17. DUODOPA [Suspect]
     Active Substance: CARBIDOPA\LEVODOPA
     Dosage: MD: 6.1 ML, CD: 5.5 ML/H, ED: 1.0 ML; 16 HOUR ADMINISTRATION
     Route: 050

REACTIONS (36)
  - Psychotic disorder [Recovered/Resolved]
  - Aggression [Not Recovered/Not Resolved]
  - Malaise [Not Recovered/Not Resolved]
  - Unevaluable event [Not Recovered/Not Resolved]
  - Dependence [Not Recovered/Not Resolved]
  - Faeces hard [Recovered/Resolved]
  - Muscle spasms [Not Recovered/Not Resolved]
  - Hallucination [Recovered/Resolved]
  - Stoma site discomfort [Recovered/Resolved]
  - Memory impairment [Not Recovered/Not Resolved]
  - Musculoskeletal stiffness [Not Recovered/Not Resolved]
  - Therapeutic product effect incomplete [Recovered/Resolved]
  - Device dislocation [Unknown]
  - Device difficult to use [Unknown]
  - Freezing phenomenon [Not Recovered/Not Resolved]
  - Dystonia [Not Recovered/Not Resolved]
  - Patient-device incompatibility [Unknown]
  - Dyskinesia [Recovered/Resolved]
  - On and off phenomenon [Not Recovered/Not Resolved]
  - Reduced facial expression [Not Recovered/Not Resolved]
  - Stoma site discharge [Recovered/Resolved]
  - Overdose [Not Recovered/Not Resolved]
  - Mental disorder [Not Recovered/Not Resolved]
  - Muscle rigidity [Not Recovered/Not Resolved]
  - Impaired quality of life [Not Recovered/Not Resolved]
  - Dyskinesia [Not Recovered/Not Resolved]
  - Unevaluable event [Unknown]
  - Personality disorder [Not Recovered/Not Resolved]
  - Device breakage [Unknown]
  - Drug abuse [Recovered/Resolved]
  - Bradykinesia [Not Recovered/Not Resolved]
  - Stoma site inflammation [Recovered/Resolved]
  - Mobility decreased [Recovering/Resolving]
  - Loss of personal independence in daily activities [Not Recovered/Not Resolved]
  - Unevaluable event [Not Recovered/Not Resolved]
  - Insomnia [Not Recovered/Not Resolved]

NARRATIVE: CASE EVENT DATE: 2020
